FAERS Safety Report 10261886 (Version 1)
Quarter: 2014Q2

REPORT INFORMATION
  Report Type: Report from Study
  Country: CA (occurrence: CA)
  Receive Date: 20140626
  Receipt Date: 20140626
  Transmission Date: 20141212
  Serious: Yes (Other)
  Sender: FDA-Public Use
  Company Number: PHHY2014CA078620

PATIENT
  Sex: Male

DRUGS (4)
  1. CLOZARIL [Suspect]
     Indication: SCHIZOPHRENIA
     Route: 048
     Dates: start: 20140220
  2. CLOZARIL [Suspect]
     Dosage: 200 MG, HS
     Route: 048
     Dates: start: 20140430
  3. CLOZARIL [Suspect]
     Dosage: 300 MG, PER DAY
     Route: 048
  4. CLOZARIL [Suspect]
     Dosage: 200 MG, PER DAY
     Route: 048

REACTIONS (2)
  - Loss of consciousness [Recovered/Resolved]
  - Tachycardia [Recovering/Resolving]
